FAERS Safety Report 9253026 (Version 2)
Quarter: 2013Q2

REPORT INFORMATION
  Report Type: Spontaneous
  Country: DE (occurrence: DE)
  Receive Date: 20130424
  Receipt Date: 20130429
  Transmission Date: 20140414
  Serious: Yes (Hospitalization)
  Sender: FDA-Public Use
  Company Number: DE-PFIZER INC-2013122986

PATIENT
  Age: 48 Year
  Sex: Female

DRUGS (10)
  1. IBUPROFEN [Suspect]
     Indication: PRODUCT USED FOR UNKNOWN INDICATION
     Dosage: UNK
     Route: 048
     Dates: start: 20130203, end: 20130203
  2. TAVOR [Suspect]
     Indication: PRODUCT USED FOR UNKNOWN INDICATION
     Dosage: 1 MG, 1X/DAY
     Route: 048
     Dates: start: 20130215, end: 20130215
  3. PANTOPRAZOLE [Suspect]
     Indication: PRODUCT USED FOR UNKNOWN INDICATION
     Dosage: 20 MG, 1X/DAY
     Route: 048
     Dates: start: 20130205, end: 20130207
  4. ABILIFY [Suspect]
     Indication: PRODUCT USED FOR UNKNOWN INDICATION
     Dosage: 5 MG, 1X/DAY
     Route: 048
     Dates: start: 20130122, end: 20130123
  5. ABILIFY [Suspect]
     Dosage: 10 MG, 1X/DAY
     Route: 048
     Dates: start: 20130124, end: 20130131
  6. ABILIFY [Suspect]
     Dosage: 15 MG, 1X/DAY
     Route: 048
     Dates: start: 20130201, end: 20130205
  7. DIPIPERON [Suspect]
     Indication: PRODUCT USED FOR UNKNOWN INDICATION
     Dosage: 40 MG, 1X/DAY
     Route: 048
     Dates: start: 20130204, end: 20130205
  8. L-THYROXIN [Concomitant]
     Dosage: 75 UG, 1X/DAY
     Route: 048
     Dates: start: 20130119
  9. ATOSIL [Concomitant]
     Dosage: 25 MG, 1X/DAY
     Route: 048
     Dates: start: 20130123, end: 20130124
  10. ATOSIL [Concomitant]
     Dosage: 50 MG, 1X/DAY
     Route: 048
     Dates: start: 20130128, end: 20130204

REACTIONS (2)
  - Dermatitis allergic [Not Recovered/Not Resolved]
  - Dyspnoea [Unknown]
